FAERS Safety Report 11742031 (Version 2)
Quarter: 2015Q4

REPORT INFORMATION
  Report Type: Spontaneous
  Country: US (occurrence: US)
  Receive Date: 20151116
  Receipt Date: 20151214
  Transmission Date: 20160304
  Serious: No
  Sender: FDA-Public Use
  Company Number: US-PFIZER INC-2015358562

PATIENT
  Age: 71 Year
  Sex: Female
  Weight: 59 kg

DRUGS (2)
  1. CELEBREX [Suspect]
     Active Substance: CELECOXIB
     Indication: INTERVERTEBRAL DISC DEGENERATION
     Dosage: 100 MG
  2. CELEBREX [Suspect]
     Active Substance: CELECOXIB
     Dosage: 200 MG, TOOK TWO OF THEM
     Dates: start: 201510

REACTIONS (1)
  - Drug ineffective [Unknown]
